FAERS Safety Report 6198966-5 (Version None)
Quarter: 2009Q2

REPORT INFORMATION
  Report Type: 
  Country: None (occurrence: None)
  Receive Date: 20090522
  Receipt Date: 20090513
  Transmission Date: 20091009
  Serious: Yes (Death)
  Sender: FDA-Public Use
  Company Number: GB-TEVA-195063ISR

PATIENT
  Age: 41 Year
  Sex: Male

DRUGS (1)
  1. GEMCITABINE [Suspect]
     Indication: NON-SMALL CELL LUNG CANCER
     Dosage: CYCLICAL

REACTIONS (4)
  - BONE MARROW FAILURE [None]
  - CANDIDA SEPSIS [None]
  - GASTROINTESTINAL HAEMORRHAGE [None]
  - REVERSIBLE POSTERIOR LEUKOENCEPHALOPATHY SYNDROME [None]
